FAERS Safety Report 22117504 (Version 2)
Quarter: 2023Q2

REPORT INFORMATION
  Report Type: Spontaneous
  Country: US (occurrence: US)
  Receive Date: 20230321
  Receipt Date: 20230529
  Transmission Date: 20230721
  Serious: Yes (Other)
  Sender: FDA-Public Use
  Company Number: US-AMGEN-USASP2023048271

PATIENT
  Age: 72 Year
  Sex: Female

DRUGS (3)
  1. AIMOVIG [Suspect]
     Active Substance: ERENUMAB-AOOE
     Indication: Migraine prophylaxis
     Dosage: 70 MILLIGRAM
     Route: 065
     Dates: start: 20230220, end: 2023
  2. AIMOVIG [Suspect]
     Active Substance: ERENUMAB-AOOE
     Dosage: 140 MILLIGRAM
     Route: 065
     Dates: start: 2023
  3. UBRELVY [Concomitant]
     Active Substance: UBROGEPANT
     Indication: Migraine prophylaxis
     Dosage: 100 MILLIGRAM
     Route: 065

REACTIONS (3)
  - Seizure [Not Recovered/Not Resolved]
  - Bedridden [Unknown]
  - Therapeutic product effect incomplete [Unknown]

NARRATIVE: CASE EVENT DATE: 20230101
